FAERS Safety Report 10048610 (Version 2)
Quarter: 2014Q2

REPORT INFORMATION
  Report Type: Spontaneous
  Country: IT (occurrence: IT)
  Receive Date: 20140331
  Receipt Date: 20140430
  Transmission Date: 20141212
  Serious: Yes (Other)
  Sender: FDA-Public Use
  Company Number: IT-AMGEN-ITASP2014021581

PATIENT
  Age: 84 Year
  Sex: Male

DRUGS (12)
  1. ARANESP [Suspect]
     Indication: NEPHROGENIC ANAEMIA
     Dosage: 80 MG, UNK
     Route: 042
     Dates: start: 20131003
  2. ARANESP [Suspect]
     Dosage: 80 MG, UNK
     Route: 042
     Dates: start: 20131003
  3. BENEXOL                            /00176001/ [Concomitant]
     Dosage: UNK
     Route: 065
  4. CARDICOR [Concomitant]
     Dosage: UNK
     Route: 065
  5. BUSCOPAN [Concomitant]
     Dosage: UNK
     Route: 065
  6. CARDIOASPIRIN [Concomitant]
     Dosage: UNK
     Route: 065
  7. CARDURA [Concomitant]
     Dosage: UNK
     Route: 065
  8. DIBASE [Concomitant]
     Dosage: UNK
     Route: 065
  9. DIFIX [Concomitant]
     Dosage: UNK
     Route: 065
  10. FOLINA                             /00024201/ [Concomitant]
     Dosage: UNK
     Route: 065
  11. LUCEN                              /01479302/ [Concomitant]
     Dosage: UNK
     Route: 065
  12. SERPAX [Concomitant]
     Dosage: UNK
     Route: 065

REACTIONS (1)
  - Arteriovenous fistula thrombosis [Recovered/Resolved]
